FAERS Safety Report 19761064 (Version 1)
Quarter: 2021Q3

REPORT INFORMATION
  Report Type: Spontaneous
  Country: US (occurrence: US)
  Receive Date: 20210827
  Receipt Date: 20210827
  Transmission Date: 20211014
  Serious: No
  Sender: FDA-Public Use
  Company Number: None

PATIENT
  Age: 64 Year
  Sex: Female
  Weight: 74.25 kg

DRUGS (5)
  1. WOMEN^S 50?PLUS MULTI?VITAMIN [Concomitant]
  2. PROMETHAZINE [Concomitant]
     Active Substance: PROMETHAZINE HYDROCHLORIDE
  3. IBGARD FOR IBS FLAREUPS [Concomitant]
  4. LOSARTAN POTASSIUM 50MG. [Suspect]
     Active Substance: LOSARTAN POTASSIUM
     Indication: HYPERTENSION
     Dosage: ?          QUANTITY:90 TABLET(S);?
     Route: 048
     Dates: start: 20210721, end: 20210824
  5. GINGER EXTRACT [Concomitant]

REACTIONS (5)
  - Headache [None]
  - Oropharyngeal pain [None]
  - Fatigue [None]
  - Nausea [None]
  - Lethargy [None]

NARRATIVE: CASE EVENT DATE: 20210804
